FAERS Safety Report 8098975 (Version 3)
Quarter: 2019Q2

REPORT INFORMATION
  Report Type: Spontaneous
  Country: FR (occurrence: FR)
  Receive Date: 20110819
  Receipt Date: 20190412
  Transmission Date: 20190711
  Serious: Yes (Hospitalization, Other)
  Sender: FDA-Public Use
  Company Number: FR-ASTRAZENECA-2011SE47927

PATIENT
  Age: 794 Month
  Sex: Male

DRUGS (13)
  1. INEXIUM [Concomitant]
     Active Substance: ESOMEPRAZOLE
  2. FORLAX [Concomitant]
     Active Substance: POLYETHYLENE GLYCOL 4000
  3. LANTUS [Concomitant]
     Active Substance: INSULIN GLARGINE
  4. SOLU-MEDROL [Concomitant]
     Active Substance: METHYLPREDNISOLONE SODIUM SUCCINATE
  5. CRESTOR [Suspect]
     Active Substance: ROSUVASTATIN CALCIUM
     Indication: DYSLIPIDAEMIA
     Route: 048
     Dates: end: 20110719
  6. ALFUZOSIN [Concomitant]
     Active Substance: ALFUZOSIN
  7. CALCIPARINE [Concomitant]
     Active Substance: HEPARIN CALCIUM
  8. LEVOTHYROX [Concomitant]
     Active Substance: LEVOTHYROXINE
  9. STILNOX [Concomitant]
     Active Substance: ZOLPIDEM TARTRATE
  10. XYZAL [Concomitant]
     Active Substance: LEVOCETIRIZINE DIHYDROCHLORIDE
  11. GLUCOPHAGE [Suspect]
     Active Substance: METFORMIN HYDROCHLORIDE
     Indication: DIABETES MELLITUS
     Route: 048
     Dates: start: 20091231, end: 20110719
  12. SUTENT [Suspect]
     Active Substance: SUNITINIB MALATE
     Indication: RENAL CANCER METASTATIC
     Dosage: 50 MG DAILY, 50 MG, 1X/DAY, 4 WEEKS OUT OF 6
     Route: 048
     Dates: start: 20110622, end: 20110720
  13. LOVENOX [Concomitant]
     Active Substance: ENOXAPARIN SODIUM

REACTIONS (5)
  - Asthenia [Recovering/Resolving]
  - Rhabdomyolysis [Recovering/Resolving]
  - Muscular weakness [Recovering/Resolving]
  - Thrombocytopenia [Recovering/Resolving]
  - Neutropenia [Recovering/Resolving]

NARRATIVE: CASE EVENT DATE: 201106
